FAERS Safety Report 6837930-7 (Version None)
Quarter: 2010Q3

REPORT INFORMATION
  Report Type: 
  Country: None (occurrence: None)
  Receive Date: 20100713
  Receipt Date: 20070525
  Transmission Date: 20110219
  Serious: No
  Sender: FDA-Public Use
  Company Number: US-PFIZER INC-2007043351

PATIENT
  Sex: Female
  Weight: 58.6 kg

DRUGS (11)
  1. CHANTIX [Suspect]
     Indication: SMOKING CESSATION THERAPY
     Dates: start: 20070425, end: 20070101
  2. ALL OTHER THERAPEUTIC PRODUCTS [Concomitant]
  3. RANITIDINE [Concomitant]
     Indication: GASTRIC DISORDER
  4. SODIUM BICARBONATE [Concomitant]
  5. AMITRIPTYLINE HYDROCHLORIDE [Concomitant]
  6. SALAGEN [Concomitant]
  7. ACETYLSALICYLIC ACID [Concomitant]
  8. LEFLUNOMIDE [Concomitant]
  9. FOLIC ACID [Concomitant]
  10. MULTI-VITAMINS [Concomitant]
  11. CALCIUM WITH VITAMIN D [Concomitant]

REACTIONS (2)
  - NAUSEA [None]
  - VIRAL INFECTION [None]
